FAERS Safety Report 17365440 (Version 3)
Quarter: 2020Q2

REPORT INFORMATION
  Report Type: Spontaneous
  Country: US (occurrence: US)
  Receive Date: 20200204
  Receipt Date: 20200408
  Transmission Date: 20200713
  Serious: Yes (Life-Threatening, Hospitalization, Other)
  Sender: FDA-Public Use
  Company Number: US-DRREDDYS-USA/USA/20/0119280

PATIENT
  Age: 31 Year
  Sex: Female
  Weight: 60 kg

DRUGS (5)
  1. MYCOPHENOLATE MOFETIL. [Suspect]
     Active Substance: MYCOPHENOLATE MOFETIL
     Indication: IMMUNOSUPPRESSANT DRUG THERAPY
     Route: 065
     Dates: start: 201710, end: 201804
  2. BASILIXIMAB [Suspect]
     Active Substance: BASILIXIMAB
     Indication: IMMUNOSUPPRESSANT DRUG THERAPY
     Dosage: 2 DOSES, ON POSTOPERATIVE DAY 0 AND 4
     Route: 065
     Dates: start: 201710, end: 201710
  3. MYCOPHENOLATE MOFETIL. [Suspect]
     Active Substance: MYCOPHENOLATE MOFETIL
     Dates: end: 201808
  4. TACROLIMUS. [Suspect]
     Active Substance: TACROLIMUS
     Indication: IMMUNOSUPPRESSANT DRUG THERAPY
     Dosage: GOAL FOR TACROLIMUS LEVEL WAS AROUND 10-12 NG/ML
     Route: 065
  5. PREDNISONE. [Suspect]
     Active Substance: PREDNISONE
     Indication: IMMUNOSUPPRESSANT DRUG THERAPY
     Route: 048
     Dates: start: 201712, end: 2018

REACTIONS (6)
  - Histoplasmosis disseminated [Recovering/Resolving]
  - Abdominal lymphadenopathy [Recovering/Resolving]
  - Retroperitoneal lymphadenopathy [Recovering/Resolving]
  - Histoplasmosis [Recovering/Resolving]
  - Lymphadenopathy [Recovering/Resolving]
  - Granuloma [Recovering/Resolving]
